FAERS Safety Report 4751071-4 (Version None)
Quarter: 2005Q3

REPORT INFORMATION
  Report Type: 
  Country: None (occurrence: None)
  Receive Date: 20050822
  Receipt Date: 20050808
  Transmission Date: 20060218
  Serious: Yes (Other)
  Sender: FDA-Public Use
  Company Number: 106597ISR

PATIENT
  Age: 38 Year
  Sex: Female

DRUGS (1)
  1. GLATIRAMER ACETATE [Suspect]
     Indication: MULTIPLE SCLEROSIS
     Dosage: 20 MILLIGRAM, SUBCUTANEOUS
     Route: 058
     Dates: start: 20000901

REACTIONS (22)
  - DIZZINESS [None]
  - DYSAESTHESIA [None]
  - HYPERHIDROSIS [None]
  - HYPOAESTHESIA [None]
  - IMPAIRED HEALING [None]
  - INCORRECT ROUTE OF DRUG ADMINISTRATION [None]
  - INJECTION SITE ANAESTHESIA [None]
  - INJECTION SITE DISCOLOURATION [None]
  - INJECTION SITE ERYTHEMA [None]
  - INJECTION SITE HAEMORRHAGE [None]
  - INJECTION SITE INDURATION [None]
  - INJECTION SITE IRRITATION [None]
  - INJECTION SITE NECROSIS [None]
  - INJECTION SITE PAIN [None]
  - INJECTION SITE PUSTULE [None]
  - INJECTION SITE REACTION [None]
  - INJECTION SITE SCAR [None]
  - INJECTION SITE SWELLING [None]
  - INJECTION SITE VESICLES [None]
  - MEDICAL DEVICE COMPLICATION [None]
  - PAIN [None]
  - RASH [None]
